FAERS Safety Report 19434570 (Version 2)
Quarter: 2021Q2

REPORT INFORMATION
  Report Type: Spontaneous
  Country: US (occurrence: US)
  Receive Date: 20210617
  Receipt Date: 20210630
  Transmission Date: 20210717
  Serious: Yes (Hospitalization, Other)
  Sender: FDA-Public Use
  Company Number: US-009507513-2106USA002626

PATIENT
  Age: 68 Year
  Sex: Female

DRUGS (11)
  1. PROTONIX [Concomitant]
     Active Substance: PANTOPRAZOLE SODIUM
  2. TRINTELLIX [Concomitant]
     Active Substance: VORTIOXETINE HYDROBROMIDE
  3. VENTOLIN HFA [Concomitant]
     Active Substance: ALBUTEROL SULFATE
     Dosage: UNK, PRN
  4. TRAMADOL. [Concomitant]
     Active Substance: TRAMADOL
  5. AMLODIPINE [Concomitant]
     Active Substance: AMLODIPINE BESYLATE
  6. KEYTRUDA [Suspect]
     Active Substance: PEMBROLIZUMAB
     Indication: HEPATIC CANCER
     Dosage: EVERY 3 WEEKS
     Route: 042
     Dates: start: 20190426
  7. VITAMINE D [Concomitant]
     Active Substance: CHOLECALCIFEROL
  8. POTASSIUM CHLORIDE. [Concomitant]
     Active Substance: POTASSIUM CHLORIDE
  9. ATIVAN [Concomitant]
     Active Substance: LORAZEPAM
     Dosage: UNK, PRN
  10. MULTIVITAMINUM [Concomitant]
     Active Substance: VITAMINS
  11. FLONASE [Concomitant]
     Active Substance: FLUTICASONE PROPIONATE

REACTIONS (16)
  - Nephrolithiasis [Unknown]
  - Vein disorder [Unknown]
  - Nausea [Unknown]
  - Vomiting [Unknown]
  - Adverse event [Unknown]
  - Asthenia [Unknown]
  - Pruritus [Unknown]
  - Arthralgia [Unknown]
  - Somnolence [Unknown]
  - Jaundice [Unknown]
  - Wheezing [Unknown]
  - Blood bilirubin increased [Unknown]
  - Dyspnoea exertional [Unknown]
  - Catheter site pruritus [Unknown]
  - Blood magnesium decreased [Unknown]
  - Urinary tract infection [Recovered/Resolved]

NARRATIVE: CASE EVENT DATE: 2021
